FAERS Safety Report 23775660 (Version 1)
Quarter: 2024Q2

REPORT INFORMATION
  Report Type: Spontaneous
  Country: US (occurrence: US)
  Receive Date: 20240423
  Receipt Date: 20240423
  Transmission Date: 20240716
  Serious: Yes (Other)
  Sender: FDA-Public Use
  Company Number: US-BRISTOL-MYERS SQUIBB COMPANY-2024-057003

PATIENT
  Age: 68 Year
  Sex: Female
  Weight: 61.2 kg

DRUGS (27)
  1. REVLIMID [Suspect]
     Active Substance: LENALIDOMIDE
     Indication: Light chain disease
     Route: 048
     Dates: start: 20240205
  2. LENALIDOMIDE [Suspect]
     Active Substance: LENALIDOMIDE
     Indication: Light chain disease
  3. DEXAMETHASONE SODIUM PHOSPHATE [Suspect]
     Active Substance: DEXAMETHASONE PHOSPHATE\DEXAMETHASONE SODIUM PHOSPHATE
     Indication: Light chain disease
  4. DEXAMETHASONE [Suspect]
     Active Substance: DEXAMETHASONE
     Indication: Light chain disease
     Route: 048
     Dates: start: 20231106
  5. ORENITRAM [Suspect]
     Active Substance: TREPROSTINIL
     Indication: Pulmonary arterial hypertension
     Dosage: UNKNOWN
     Route: 048
  6. ORENITRAM [Suspect]
     Active Substance: TREPROSTINIL
     Dosage: (2 TABLETS OF 0.25 MG AND 1 TABLET OF 2.5 MG), TID, ORAL USE (EXTENDED-RELEASE TABLET)
     Route: 048
     Dates: start: 20240126
  7. DARZALEX [Suspect]
     Active Substance: DARATUMUMAB
     Indication: Light chain disease
  8. VELCADE [Suspect]
     Active Substance: BORTEZOMIB
     Indication: Light chain disease
     Dates: start: 20230109
  9. MORPHINE SULFATE [Suspect]
     Active Substance: MORPHINE SULFATE
     Indication: Bone pain
     Dates: end: 20240219
  10. DARATUMUMAB [Suspect]
     Active Substance: DARATUMUMAB
     Indication: Light chain disease
  11. MICRO K [Concomitant]
     Indication: Product used for unknown indication
     Dates: start: 20230821
  12. REMERON [Concomitant]
     Active Substance: MIRTAZAPINE
     Dates: start: 20230413
  13. OPSUMIT [Concomitant]
     Active Substance: MACITENTAN
     Indication: Product used for unknown indication
     Dates: start: 20231031
  14. VITAMIN D3 [Concomitant]
     Active Substance: CHOLECALCIFEROL
     Indication: Product used for unknown indication
  15. ADCIRCA [Concomitant]
     Active Substance: TADALAFIL
     Indication: Product used for unknown indication
     Dates: start: 20221212
  16. ADCIRCA [Concomitant]
     Active Substance: TADALAFIL
     Dates: start: 20231229
  17. LIPITOR [Concomitant]
     Active Substance: ATORVASTATIN CALCIUM
     Indication: Product used for unknown indication
     Dates: start: 20230413
  18. ELIQUIS [Concomitant]
     Active Substance: APIXABAN
     Indication: Product used for unknown indication
     Dates: start: 20230310
  19. LANOXIN [Concomitant]
     Active Substance: DIGOXIN
     Indication: Product used for unknown indication
     Dates: start: 20230825
  20. ATROPINE\DIPHENOXYLATE [Concomitant]
     Active Substance: ATROPINE\DIPHENOXYLATE
     Indication: Product used for unknown indication
  21. DULERA [Concomitant]
     Active Substance: FORMOTEROL FUMARATE DIHYDRATE\MOMETASONE FUROATE
     Indication: Product used for unknown indication
     Dates: start: 20230201
  22. ZOLOFT [Concomitant]
     Active Substance: SERTRALINE HYDROCHLORIDE
     Indication: Product used for unknown indication
     Dates: start: 20230413
  23. ZOLOFT [Concomitant]
     Active Substance: SERTRALINE HYDROCHLORIDE
     Dates: start: 20231221
  24. ZOFRAN [Concomitant]
     Active Substance: ONDANSETRON HYDROCHLORIDE
     Indication: Product used for unknown indication
     Dates: start: 20240108
  25. ZOVIRAX [Concomitant]
     Active Substance: ACYCLOVIR
     Indication: Product used for unknown indication
     Dates: start: 20240129
  26. DELTASONE [Concomitant]
     Active Substance: PREDNISONE
     Indication: Product used for unknown indication
  27. KLOR-CON [Concomitant]
     Active Substance: POTASSIUM CHLORIDE
     Indication: Product used for unknown indication

REACTIONS (30)
  - Cardiogenic shock [Unknown]
  - Cardiac failure congestive [Unknown]
  - Pulmonary hypertension [Unknown]
  - Hypokalaemia [Unknown]
  - Dyspnoea [Recovered/Resolved]
  - Oropharyngeal pain [Recovered/Resolved]
  - Drug hypersensitivity [Not Recovered/Not Resolved]
  - Pharyngeal swelling [Recovering/Resolving]
  - Pharyngeal erythema [Recovering/Resolving]
  - Dysphonia [Recovering/Resolving]
  - Chronic obstructive pulmonary disease [Unknown]
  - Blood pressure systolic increased [Unknown]
  - Cancer pain [Unknown]
  - Nasopharyngitis [Unknown]
  - Nausea [Recovered/Resolved]
  - Urine output decreased [Unknown]
  - Fatigue [Unknown]
  - Anaemia [Unknown]
  - Bone pain [Unknown]
  - Haemoptysis [Recovered/Resolved]
  - Abdominal pain upper [Unknown]
  - Asthenia [Unknown]
  - Kyphosis [Unknown]
  - Feeling abnormal [Unknown]
  - Hypocalcaemia [Recovered/Resolved]
  - Diarrhoea [Unknown]
  - Back pain [Unknown]
  - Skin warm [Unknown]
  - Dry skin [Unknown]
  - Malaise [Unknown]

NARRATIVE: CASE EVENT DATE: 20240209
